FAERS Safety Report 5136975-5 (Version None)
Quarter: 2006Q4

REPORT INFORMATION
  Report Type: 
  Country: None (occurrence: None)
  Receive Date: 20061030
  Receipt Date: 20061018
  Transmission Date: 20070319
  Serious: Yes (Death, Other)
  Sender: FDA-Public Use
  Company Number: AR-JNJFOC-20041206309

PATIENT
  Sex: Male
  Weight: 17.3 kg

DRUGS (4)
  1. INFLIXIMAB [Suspect]
     Indication: JUVENILE ARTHRITIS
     Route: 042
  2. METHOTREXATE SODIUM [Concomitant]
  3. SULFASALAZINE [Concomitant]
  4. MEPREDNISONE [Concomitant]

REACTIONS (2)
  - DIFFUSE LARGE B-CELL LYMPHOMA STAGE II [None]
  - PSEUDOMONAL SEPSIS [None]
